FAERS Safety Report 4597189-0 (Version None)
Quarter: 2005Q1

REPORT INFORMATION
  Report Type: 
  Country: None (occurrence: None)
  Receive Date: 20050301
  Receipt Date: 20050218
  Transmission Date: 20050727
  Serious: Yes (Hospitalization)
  Sender: FDA-Public Use
  Company Number: 6013174

PATIENT
  Age: 50 Year
  Sex: Female

DRUGS (7)
  1. CONCOR PLUS (HYDROCHLOROTHIAZIDE, BISOPROLOL FUMARATE) [Suspect]
     Dates: start: 20031015, end: 20031105
  2. TEGRETOL [Suspect]
     Dosage: 400 MG
     Dates: start: 20031015, end: 20031105
  3. ERGENYL CHRONO (VALPROIC ACID, VALPROATE SODIUM) [Concomitant]
  4. LORAZEPAM [Concomitant]
  5. RAMIPRIL [Concomitant]
  6. METOPROLOL SUCCINATE [Concomitant]
  7. PANTOPRAZOLE SODIUM [Concomitant]

REACTIONS (6)
  - DEHYDRATION [None]
  - DRUG INTERACTION [None]
  - GRAND MAL CONVULSION [None]
  - HYPOKALAEMIA [None]
  - HYPONATRAEMIA [None]
  - TREATMENT NONCOMPLIANCE [None]
